FAERS Safety Report 16746395 (Version 2)
Quarter: 2019Q3

REPORT INFORMATION
  Report Type: Report from Study
  Country: US (occurrence: US)
  Receive Date: 20190827
  Receipt Date: 20190829
  Transmission Date: 20191005
  Serious: Yes (Hospitalization, Other)
  Sender: FDA-Public Use
  Company Number: US-JNJFOC-20190826118

PATIENT
  Age: 71 Year
  Sex: Female
  Weight: 66.74 kg

DRUGS (3)
  1. XARELTO [Suspect]
     Active Substance: RIVAROXABAN
     Route: 048
     Dates: start: 2017
  2. XARELTO [Suspect]
     Active Substance: RIVAROXABAN
     Indication: ATRIAL FIBRILLATION
     Route: 048
  3. XARELTO [Suspect]
     Active Substance: RIVAROXABAN
     Indication: CEREBROVASCULAR ACCIDENT PROPHYLAXIS
     Route: 048
     Dates: start: 201705, end: 2017

REACTIONS (17)
  - Heart valve replacement [Recovered/Resolved]
  - Amnesia [Unknown]
  - Injury [Recovered/Resolved]
  - Candida infection [Recovered/Resolved]
  - Haemoglobin decreased [Recovered/Resolved]
  - Venous occlusion [Not Recovered/Not Resolved]
  - Pain in extremity [Not Recovered/Not Resolved]
  - Product use in unapproved indication [Unknown]
  - Abnormal weight gain [Not Recovered/Not Resolved]
  - Product administration error [Unknown]
  - Tooth infection [Recovered/Resolved]
  - Small intestinal perforation [Recovered/Resolved]
  - Chronic obstructive pulmonary disease [Not Recovered/Not Resolved]
  - Fall [Unknown]
  - Dizziness [Not Recovered/Not Resolved]
  - Off label use [Unknown]
  - Product label issue [Unknown]

NARRATIVE: CASE EVENT DATE: 2017
